FAERS Safety Report 11686721 (Version 45)
Quarter: 2023Q4

REPORT INFORMATION
  Report Type: Spontaneous
  Country: US (occurrence: US)
  Receive Date: 20151030
  Receipt Date: 20231222
  Transmission Date: 20240109
  Serious: Yes (Other)
  Sender: FDA-Public Use
  Company Number: US-PFIZER INC-2015369554

PATIENT
  Age: 53 Year
  Sex: Female
  Weight: 50 kg

DRUGS (54)
  1. PREMARIN [Interacting]
     Active Substance: ESTROGENS, CONJUGATED
     Indication: Artificial menopause
     Dosage: 1.25 MG, 1X/DAY
     Route: 048
     Dates: start: 1983, end: 1983
  2. PREMARIN [Interacting]
     Active Substance: ESTROGENS, CONJUGATED
     Indication: Hysterectomy
     Dosage: 1.25 MG, 1X/DAY (2 TABLETS ONCE DAILY)
     Route: 048
     Dates: start: 2015
  3. PREMARIN [Interacting]
     Active Substance: ESTROGENS, CONJUGATED
     Indication: Oophorectomy bilateral
     Dosage: 0.625 MG, 2X/DAY
     Route: 048
     Dates: start: 201602
  4. PREMARIN [Interacting]
     Active Substance: ESTROGENS, CONJUGATED
     Indication: Hormone replacement therapy
     Dosage: 0.625 MG, 1X/DAY
     Route: 048
  5. PREMARIN [Interacting]
     Active Substance: ESTROGENS, CONJUGATED
     Dosage: 1.25 MG, DAILY
     Route: 048
  6. PREMARIN [Interacting]
     Active Substance: ESTROGENS, CONJUGATED
     Dosage: 1.25 MG, 1X/DAY
     Route: 048
  7. PREMARIN [Interacting]
     Active Substance: ESTROGENS, CONJUGATED
     Dosage: 1.25 MG, 1X/DAY
     Route: 048
  8. PREMARIN [Interacting]
     Active Substance: ESTROGENS, CONJUGATED
     Dosage: 1.25 MG, DAILY
     Route: 048
  9. PREMARIN [Interacting]
     Active Substance: ESTROGENS, CONJUGATED
     Dosage: UNK
  10. PREMARIN [Interacting]
     Active Substance: ESTROGENS, CONJUGATED
     Dosage: 1.25 MG, 1X/DAY
     Route: 048
  11. PREMARIN [Interacting]
     Active Substance: ESTROGENS, CONJUGATED
     Dosage: 1.25 MG, 1X/DAY
     Route: 048
  12. PREMARIN [Interacting]
     Active Substance: ESTROGENS, CONJUGATED
     Dosage: 1.25 MG, DAILY
  13. PREMARIN [Interacting]
     Active Substance: ESTROGENS, CONJUGATED
     Dosage: 1.25 MG, DAILY
     Route: 048
     Dates: start: 20231117
  14. PREMARIN [Interacting]
     Active Substance: ESTROGENS, CONJUGATED
     Indication: Vulvovaginal dryness
     Dosage: 0.625 MG, 1X/DAY (AT BED TIME)
     Dates: start: 2008
  15. PREMARIN [Interacting]
     Active Substance: ESTROGENS, CONJUGATED
     Indication: Vulvovaginal pain
     Dosage: 0.625 MG, 1X/DAY (1 APPLICATOR A DAY)
  16. PREMARIN [Interacting]
     Active Substance: ESTROGENS, CONJUGATED
     Indication: Vulvovaginal discomfort
     Dosage: 0.65 MG, 1X/DAY (APPLICATOR USES 0.5 APPLIED ONCE NIGHTLY)
  17. PREMARIN [Interacting]
     Active Substance: ESTROGENS, CONJUGATED
     Indication: Menopause
     Dosage: 0.5 MG, DAILY
     Route: 067
     Dates: start: 2008
  18. PREMARIN [Interacting]
     Active Substance: ESTROGENS, CONJUGATED
     Indication: Hormone replacement therapy
     Dosage: UNK
  19. PREMARIN [Interacting]
     Active Substance: ESTROGENS, CONJUGATED
     Dosage: UNK
     Dates: start: 201701
  20. PREMARIN [Interacting]
     Active Substance: ESTROGENS, CONJUGATED
     Dosage: 0.5 G, AS NEEDED (3-5 TIMES WEEKLY DEPENDING ON THE CONDITION OF HER VAGINA)
     Route: 067
  21. PREMARIN [Interacting]
     Active Substance: ESTROGENS, CONJUGATED
     Dosage: 0.625 MG, AS NEEDED  (THREE TIMES A WEEK OR AS NEEDED)
     Route: 067
     Dates: start: 2008
  22. PREMARIN [Interacting]
     Active Substance: ESTROGENS, CONJUGATED
     Dosage: 0.625 MG (VAGINAL APPLICATOR TO THE FIRST LINE WITH THE LOWEST AMOUNT)
     Route: 067
     Dates: start: 201807
  23. PREMARIN [Interacting]
     Active Substance: ESTROGENS, CONJUGATED
     Dosage: 0.625 MG (SUFFICIENT PV 3 X WEEK)
  24. PREMARIN [Interacting]
     Active Substance: ESTROGENS, CONJUGATED
     Dosage: UNK
  25. PREMARIN [Interacting]
     Active Substance: ESTROGENS, CONJUGATED
     Dosage: UNK,  THREE TIMES A WEEK
  26. PREMARIN [Interacting]
     Active Substance: ESTROGENS, CONJUGATED
     Dosage: 0.5 G, THREE TIMES PER WEEK
     Route: 067
  27. PREMARIN [Interacting]
     Active Substance: ESTROGENS, CONJUGATED
     Dosage: 1 G, DAILY
     Route: 067
     Dates: start: 20231117
  28. SYNTHROID [Interacting]
     Active Substance: LEVOTHYROXINE SODIUM
     Indication: Hypothyroidism
     Dosage: 100 UG 1X/DAY OR SIX TIMES A WEEK
     Route: 048
     Dates: start: 1983, end: 201602
  29. SYNTHROID [Interacting]
     Active Substance: LEVOTHYROXINE SODIUM
     Indication: Hormone replacement therapy
     Dosage: 75 UG, DAILY
     Route: 048
     Dates: start: 201602
  30. SYNTHROID [Interacting]
     Active Substance: LEVOTHYROXINE SODIUM
     Dosage: 88 UG, DAILY
  31. SYNTHROID [Interacting]
     Active Substance: LEVOTHYROXINE SODIUM
     Dosage: 88 UG, DAILY
     Route: 048
  32. SYNTHROID [Interacting]
     Active Substance: LEVOTHYROXINE SODIUM
     Dosage: 0.88 UG, DAILY
     Route: 048
  33. SYNTHROID [Interacting]
     Active Substance: LEVOTHYROXINE SODIUM
     Dosage: 100 UG, DAILY
     Route: 048
  34. SYNTHROID [Interacting]
     Active Substance: LEVOTHYROXINE SODIUM
     Dosage: 88 UG, 1X/DAY
     Route: 048
     Dates: start: 2016
  35. SYNTHROID [Interacting]
     Active Substance: LEVOTHYROXINE SODIUM
     Dosage: 88 UG, UNK
  36. SYNTHROID [Interacting]
     Active Substance: LEVOTHYROXINE SODIUM
     Dosage: 88 UG, SINGLE (ONCE)
  37. SYNTHROID [Interacting]
     Active Substance: LEVOTHYROXINE SODIUM
     Dosage: UNK
  38. CLONAZEPAM [Concomitant]
     Active Substance: CLONAZEPAM
     Indication: Muscle spasms
     Dosage: 1 MG, 1X/DAY
  39. CLONAZEPAM [Concomitant]
     Active Substance: CLONAZEPAM
     Indication: Nervous system disorder
     Dosage: 1/2 TO 1 TABLET NIGHTLY, AS NEEDED
  40. CLONAZEPAM [Concomitant]
     Active Substance: CLONAZEPAM
     Dosage: 0.5 MG, DAILY (1MG TABLET, TAKES 1/2 TABLET A DAY BY MOUTH)
     Route: 048
  41. CLONAZEPAM [Concomitant]
     Active Substance: CLONAZEPAM
     Dosage: UNK, DAILY (TAKES 1/2 TABLET A DAY BY MOUTH)
     Route: 048
  42. CLONAZEPAM [Concomitant]
     Active Substance: CLONAZEPAM
     Dosage: 0.5 MG, DAILY (0.5 MG AND CAN TAKE UP TO 2MG PILL DAILY)
     Route: 048
  43. CLONAZEPAM [Concomitant]
     Active Substance: CLONAZEPAM
     Dosage: UNK, 1X/DAY  (0.25 TO 0.5 MG TABLET NIGHTLY BY MOUTH)
     Route: 048
  44. VOLTAREN [Concomitant]
     Active Substance: DICLOFENAC SODIUM
     Indication: Arthritis
     Dosage: 2 MG (1 + 3/4 INCH STRIP), AS NEEDED
     Route: 061
     Dates: start: 2007
  45. ASPIRIN [Concomitant]
     Active Substance: ASPIRIN
     Indication: Cerebrovascular accident prophylaxis
     Dosage: 81 MG, DAILY
     Route: 048
  46. EVENING PRIMROSE OIL\HERBALS [Concomitant]
     Active Substance: EVENING PRIMROSE OIL\HERBALS
     Indication: Arthritis
     Dosage: 1300 MG, 1X/DAY
     Dates: start: 2010
  47. EVENING PRIMROSE OIL\HERBALS [Concomitant]
     Active Substance: EVENING PRIMROSE OIL\HERBALS
     Indication: Supplementation therapy
     Dosage: 1300 MG, DAILY (SOFT GEL CAPSULE)
     Route: 048
     Dates: start: 201708
  48. KETOCONAZOLE [Concomitant]
     Active Substance: KETOCONAZOLE
     Indication: Rash
     Dosage: 2 %, AS NEEDED
     Route: 061
     Dates: start: 2009
  49. NAPROXEN SODIUM [Concomitant]
     Active Substance: NAPROXEN\NAPROXEN SODIUM
     Indication: Arthritis
     Dosage: UNK, AS NEEDED
     Dates: start: 2007
  50. MOMETASONE FUROATE [Concomitant]
     Active Substance: MOMETASONE FUROATE
     Indication: Rash
     Dosage: 0.1 %, AS NEEDED
  51. TRIAMCINOLONE ACETONIDE [Concomitant]
     Active Substance: TRIAMCINOLONE ACETONIDE
     Indication: Rash
     Dosage: 0.1 %, AS NEEDED
  52. FLUTICASONE PROPIONATE [Concomitant]
     Active Substance: FLUTICASONE PROPIONATE
     Indication: Hypersensitivity
     Dosage: 50 UG, AS NEEDED [2 SPRAYS A DAY]
     Dates: start: 2016
  53. ASPIRIN [Concomitant]
     Active Substance: ASPIRIN
     Dosage: 81 MG, 1X/DAY
  54. LANSOPRAZOLE [Concomitant]
     Active Substance: LANSOPRAZOLE
     Indication: Gastrooesophageal reflux disease
     Dosage: 30 MG, DAILY
     Route: 048
     Dates: start: 201708

REACTIONS (35)
  - Hypothermia [Unknown]
  - Drug ineffective [Not Recovered/Not Resolved]
  - Feeling abnormal [Unknown]
  - Hormone level abnormal [Unknown]
  - Amnesia [Unknown]
  - Dry skin [Unknown]
  - Confusional state [Unknown]
  - Alopecia [Unknown]
  - Mood swings [Unknown]
  - Illness [Not Recovered/Not Resolved]
  - Drug interaction [Unknown]
  - Weight decreased [Unknown]
  - Pollakiuria [Unknown]
  - Irregular sleep wake rhythm disorder [Not Recovered/Not Resolved]
  - Weight fluctuation [Unknown]
  - Malabsorption [Unknown]
  - Circadian rhythm sleep disorder [Not Recovered/Not Resolved]
  - Insomnia [Unknown]
  - Somnolence [Unknown]
  - Vulval disorder [Unknown]
  - Vulvovaginal burning sensation [Not Recovered/Not Resolved]
  - Migraine [Not Recovered/Not Resolved]
  - Pain [Unknown]
  - Breast disorder [Not Recovered/Not Resolved]
  - Nervous system disorder [Unknown]
  - Psychotic disorder [Recovered/Resolved]
  - Soliloquy [Not Recovered/Not Resolved]
  - Oestrone decreased [Unknown]
  - Expired product administered [Unknown]
  - Contraindicated product administered [Unknown]
  - Product dose omission issue [Unknown]
  - Poor quality product administered [Unknown]
  - Product coating issue [Unknown]
  - Product complaint [Unknown]
  - Off label use [Unknown]

NARRATIVE: CASE EVENT DATE: 20050101
